FAERS Safety Report 18479356 (Version 1)
Quarter: 2020Q4

REPORT INFORMATION
  Report Type: Spontaneous
  Country: US (occurrence: US)
  Receive Date: 20201109
  Receipt Date: 20201109
  Transmission Date: 20210114
  Serious: No
  Sender: FDA-Public Use
  Company Number: US-SA-2020SA313717

PATIENT

DRUGS (2)
  1. CEREZYME [Suspect]
     Active Substance: IMIGLUCERASE
     Indication: GAUCHER^S DISEASE
     Dosage: 7 VIALS FOR THE FIRST WEEK
  2. CEREZYME [Suspect]
     Active Substance: IMIGLUCERASE
     Dosage: 6 VIALS THE NEXT WEEK

REACTIONS (2)
  - Off label use [Unknown]
  - Therapy cessation [Unknown]
